FAERS Safety Report 16635429 (Version 2)
Quarter: 2025Q4

REPORT INFORMATION
  Report Type: Spontaneous
  Country: EU (occurrence: EU)
  Receive Date: 20190726
  Receipt Date: 20251014
  Transmission Date: 20260117
  Serious: Yes (Other)
  Sender: AUROBINDO
  Company Number: EU-AUROBINDO-AUR-APL-2019-043471

PATIENT
  Sex: Male

DRUGS (4)
  1. ACETAMINOPHEN\TRAMADOL [Suspect]
     Active Substance: ACETAMINOPHEN\TRAMADOL
     Indication: Product used for unknown indication
     Dosage: UNK
     Route: 065
  2. TRAMADOL [Suspect]
     Active Substance: TRAMADOL
     Indication: Tendonitis
     Dosage: SMALL DOSES OF THE DRUG SEVERAL TIMES A WEEK
     Route: 065
  3. TRAMADOL [Suspect]
     Active Substance: TRAMADOL
     Indication: Lyme disease
     Dosage: 400 MILLIGRAM, ONCE A DAY
     Route: 065
  4. TRAMADOL [Suspect]
     Active Substance: TRAMADOL
     Dosage: INCREASE THE DOSE
     Route: 065

REACTIONS (3)
  - Panic attack [Recovered/Resolved]
  - Withdrawal syndrome [Recovered/Resolved]
  - Drug dependence [Recovered/Resolved]
